FAERS Safety Report 5259660-8 (Version None)
Quarter: 2007Q1

REPORT INFORMATION
  Report Type: 
  Country: None (occurrence: None)
  Receive Date: 20070307
  Receipt Date: 20070307
  Transmission Date: 20070707
  Serious: Yes (Hospitalization)
  Sender: FDA-Public Use
  Company Number: None

PATIENT
  Sex: Female
  Weight: 70.7 kg

DRUGS (6)
  1. TOPOTECAN [Suspect]
     Dosage: 8.55 MG
  2. ALBUTEROL [Concomitant]
  3. CLONIPAN [Concomitant]
  4. NASACORT [Concomitant]
  5. PAXIL [Concomitant]
  6. PRILOSEC [Concomitant]

REACTIONS (7)
  - ABDOMINAL DISTENSION [None]
  - CHEST DISCOMFORT [None]
  - CHEST PAIN [None]
  - NAUSEA [None]
  - NEUTROPENIA [None]
  - PAIN [None]
  - VOMITING [None]
